FAERS Safety Report 20698341 (Version 2)
Quarter: 2022Q2

REPORT INFORMATION
  Report Type: Spontaneous
  Country: JP (occurrence: JP)
  Receive Date: 20220412
  Receipt Date: 20220517
  Transmission Date: 20220720
  Serious: Yes (Hospitalization, Other)
  Sender: FDA-Public Use
  Company Number: JP-ONO-2022JP008851

PATIENT
  Age: 8 Decade
  Sex: Female

DRUGS (1)
  1. OPDIVO [Suspect]
     Active Substance: NIVOLUMAB
     Indication: Malignant melanoma
     Dosage: UNK, ONCE/MONTH
     Route: 041
     Dates: start: 202108

REACTIONS (5)
  - Cardiac tamponade [Recovered/Resolved]
  - Hypothyroidism [Recovering/Resolving]
  - Ventricular tachycardia [Unknown]
  - Post procedural complication [Unknown]
  - Pericarditis [Unknown]
